FAERS Safety Report 5306142-0 (Version None)
Quarter: 2007Q2

REPORT INFORMATION
  Report Type: 
  Country: None (occurrence: None)
  Receive Date: 20070420
  Receipt Date: 20070420
  Transmission Date: 20071010
  Serious: Yes (Other)
  Sender: FDA-Public Use
  Company Number: None

PATIENT
  Age: 54 Year
  Sex: Female
  Weight: 55.3388 kg

DRUGS (6)
  1. AVELOX [Suspect]
     Indication: SINUSITIS
     Dosage: ONE TABLE PER DAY FOR 10 DAYS
     Dates: start: 20060401, end: 20060501
  2. AVELOX [Suspect]
     Indication: STREPTOCOCCAL INFECTION
     Dosage: ONE TABLE PER DAY FOR 10 DAYS
     Dates: start: 20060401, end: 20060501
  3. LEVOTHYROXINE SODIUM [Concomitant]
  4. ZANTAC [Concomitant]
  5. ZYRTEC [Concomitant]
  6. PREDNISOLONE [Concomitant]

REACTIONS (15)
  - ANGIOEDEMA [None]
  - DECREASED ACTIVITY [None]
  - EYE DISORDER [None]
  - GENERAL PHYSICAL HEALTH DETERIORATION [None]
  - HAEMATOCRIT DECREASED [None]
  - HYPERSENSITIVITY [None]
  - IMPAIRED DRIVING ABILITY [None]
  - IMPAIRED WORK ABILITY [None]
  - PAIN [None]
  - PRURITUS [None]
  - RASH [None]
  - SLEEP DISORDER [None]
  - THERAPEUTIC PRODUCT CONTAMINATION [None]
  - URTICARIA [None]
  - VISUAL DISTURBANCE [None]
